FAERS Safety Report 21521936 (Version 1)
Quarter: 2022Q4

REPORT INFORMATION
  Report Type: Report from Study
  Country: US (occurrence: US)
  Receive Date: 20221028
  Receipt Date: 20221028
  Transmission Date: 20230113
  Serious: No
  Sender: FDA-Public Use
  Company Number: US-ABBVIE-4132014

PATIENT
  Sex: Female

DRUGS (1)
  1. HUMIRA [Suspect]
     Active Substance: ADALIMUMAB
     Indication: Hidradenitis
     Dosage: INITIAL DOSE ON OR AROUND 29 JUL 2022?STRENGTH: 40 MG?CITRATE FREE
     Route: 058
     Dates: start: 2022

REACTIONS (3)
  - Fatigue [Recovering/Resolving]
  - Hypersomnia [Unknown]
  - Menstruation irregular [Unknown]

NARRATIVE: CASE EVENT DATE: 20220101
